FAERS Safety Report 6077464-3 (Version None)
Quarter: 2009Q1

REPORT INFORMATION
  Report Type: 
  Country: None (occurrence: None)
  Receive Date: 20090213
  Receipt Date: 20081120
  Transmission Date: 20090719
  Serious: No
  Sender: FDA-Public Use
  Company Number: A0757433A

PATIENT
  Age: 58 Year
  Sex: Female

DRUGS (5)
  1. TREXIMET [Suspect]
     Indication: MIGRAINE
     Dosage: 1TAB TWICE PER DAY
     Route: 048
     Dates: start: 20081110, end: 20081117
  2. PROZAC [Concomitant]
  3. WELLBUTRIN [Concomitant]
  4. SKELAXIN [Concomitant]
  5. VALTREX [Concomitant]

REACTIONS (5)
  - ABDOMINAL DISTENSION [None]
  - EATING DISORDER [None]
  - FATIGUE [None]
  - FLATULENCE [None]
  - MALAISE [None]
